FAERS Safety Report 26116286 (Version 1)
Quarter: 2025Q4

REPORT INFORMATION
  Report Type: Report from Study
  Country: CA (occurrence: CA)
  Receive Date: 20251203
  Receipt Date: 20251203
  Transmission Date: 20260117
  Serious: Yes (Hospitalization)
  Sender: SAMSUNG BIOEPIS
  Company Number: CA-SAMSUNG BIOEPIS-SB-2025-38221

PATIENT
  Age: 18 Year
  Sex: Male

DRUGS (2)
  1. HADLIMA [Suspect]
     Active Substance: ADALIMUMAB-BWWD
     Indication: Crohn^s disease
     Dosage: 40 MG/0.4 ML; CITRATE FREE; AI;
     Route: 058
     Dates: start: 20251006
  2. HADLIMA [Suspect]
     Active Substance: ADALIMUMAB-BWWD
     Dosage: 40 MG/0.4 ML; CITRATE FREE;
     Dates: start: 20251006

REACTIONS (5)
  - Urinary tract infection [Unknown]
  - Small intestinal obstruction [Unknown]
  - Infection [Unknown]
  - Dysuria [Unknown]
  - Urine output decreased [Unknown]
